FAERS Safety Report 12484600 (Version 1)
Quarter: 2016Q2

REPORT INFORMATION
  Report Type: Spontaneous
  Country: GB (occurrence: GB)
  Receive Date: 20160621
  Receipt Date: 20160621
  Transmission Date: 20160815
  Serious: Yes (Hospitalization)
  Sender: FDA-Public Use
  Company Number: GB-TEVA-667386ACC

PATIENT
  Age: 77 Year

DRUGS (18)
  1. DARBEPOETIN ALFA [Concomitant]
     Active Substance: DARBEPOETIN ALFA
     Dosage: WEDNESDAY
  2. SENNA [Concomitant]
     Active Substance: SENNA LEAF\SENNOSIDES\SENNOSIDES A AND B
     Dosage: ACUTE - FOR 6 DAYS
     Dates: start: 20160219
  3. OXYCODONE [Concomitant]
     Active Substance: OXYCODONE
     Dosage: 10 MILLIGRAM DAILY; ACUTE - FOR 4 DAYS. MODIFIED-RELEASE
     Dates: start: 20160219
  4. ADCAL-D3 [Concomitant]
     Active Substance: CALCIUM CARBONATE\CHOLECALCIFEROL
     Dosage: 2 DOSAGE FORMS DAILY; TUTTI-FRUTTI
  5. WARFARIN [Suspect]
     Active Substance: WARFARIN
  6. DALTEPARIN [Suspect]
     Active Substance: DALTEPARIN
     Dosage: 10,000UNITS/0.4ML ?ONE TO BE ADMINISTERED ON 13TH, 14TH AND 15TH FEB.
     Dates: start: 20160213
  7. FUROSEMIDE. [Concomitant]
     Active Substance: FUROSEMIDE
     Dosage: 20 MILLIGRAM DAILY; EACH MORNING
  8. GABAPENTIN. [Concomitant]
     Active Substance: GABAPENTIN
     Dosage: 100 MILLIGRAM DAILY; ACUTE - FOR 4 DAYS
     Dates: start: 20160219
  9. PERINDOPRIL [Concomitant]
     Active Substance: PERINDOPRIL
     Dosage: 8 MILLIGRAM DAILY;
  10. DIGOXIN. [Concomitant]
     Active Substance: DIGOXIN
     Dosage: 62.5 MICROGRAM DAILY;
  11. DULOXETINE. [Concomitant]
     Active Substance: DULOXETINE
     Dosage: 30 MILLIGRAM DAILY;
  12. GLICLAZIDE [Concomitant]
     Active Substance: GLICLAZIDE
     Dosage: 80 MILLIGRAM DAILY; REDUCING LEVEL ADJUSTMENTS
  13. SIMVASTATIN. [Concomitant]
     Active Substance: SIMVASTATIN
     Dosage: 20 MILLIGRAM DAILY; AT NIGHT
  14. ENOXAPARIN [Concomitant]
     Active Substance: ENOXAPARIN
     Dosage: 100 MILLIGRAM DAILY; ACUTE - FOR 5 DAYS
     Dates: start: 20160219
  15. DOCUSATE [Concomitant]
     Active Substance: DOCUSATE
     Dosage: 400 MILLIGRAM DAILY; ACUTE - FOR 7 DAYS
     Dates: start: 20160219
  16. PARACETAMOL [Concomitant]
     Active Substance: ACETAMINOPHEN
     Dosage: 4 GRAM DAILY; ACUTE - FOR 5 DAYS.
     Dates: start: 20160219
  17. DOXAZOSIN [Concomitant]
     Active Substance: DOXAZOSIN\DOXAZOSIN MESYLATE
     Dosage: 2 MILLIGRAM DAILY;
  18. ATENOLOL. [Concomitant]
     Active Substance: ATENOLOL
     Dosage: 25 MILLIGRAM DAILY;

REACTIONS (6)
  - Haematemesis [Unknown]
  - Melaena [Unknown]
  - Oesophageal ulcer [Unknown]
  - Oesophagitis [Unknown]
  - Gastrointestinal haemorrhage [Unknown]
  - Gastric ulcer [Unknown]
